FAERS Safety Report 6121468-9 (Version None)
Quarter: 2009Q1

REPORT INFORMATION
  Report Type: 
  Country: None (occurrence: None)
  Receive Date: 20090313
  Receipt Date: 20090313
  Transmission Date: 20090719
  Serious: Yes (Hospitalization)
  Sender: FDA-Public Use
  Company Number: None

PATIENT
  Sex: Male
  Weight: 86.5 kg

DRUGS (2)
  1. BUSULFAN [Suspect]
     Dosage: 528 MG
  2. FLUDARABINE PHOSPHATE [Suspect]
     Dosage: 290 MG

REACTIONS (17)
  - ACUTE RESPIRATORY DISTRESS SYNDROME [None]
  - ANAEMIA HAEMOLYTIC AUTOIMMUNE [None]
  - APNOEA [None]
  - BK VIRUS INFECTION [None]
  - BLOOD CULTURE POSITIVE [None]
  - CULTURE POSITIVE [None]
  - CULTURE URINE POSITIVE [None]
  - ENTEROCOCCAL INFECTION [None]
  - FALL [None]
  - FLUID IMBALANCE [None]
  - IDIOPATHIC THROMBOCYTOPENIC PURPURA [None]
  - PARAINFLUENZAE VIRUS INFECTION [None]
  - PNEUMONIA [None]
  - PULMONARY OEDEMA [None]
  - PYREXIA [None]
  - SEDATION [None]
  - SUBDURAL HAEMATOMA [None]
